FAERS Safety Report 24771024 (Version 1)
Quarter: 2024Q4

REPORT INFORMATION
  Report Type: Report from Study
  Country: US (occurrence: US)
  Receive Date: 20241224
  Receipt Date: 20241224
  Transmission Date: 20250114
  Serious: Yes (Other)
  Sender: ABBVIE
  Company Number: US-ABBVIE-6030647

PATIENT
  Sex: Male
  Weight: 96.615 kg

DRUGS (2)
  1. HUMIRA [Suspect]
     Active Substance: ADALIMUMAB
     Indication: Psoriatic arthropathy
     Dosage: CITRATE FREE?FOR STRENGTH: 40 MG
     Route: 058
     Dates: start: 20210326, end: 202410
  2. HUMIRA [Suspect]
     Active Substance: ADALIMUMAB
     Dosage: CITRATE FREE
     Route: 058
     Dates: start: 2024

REACTIONS (7)
  - Osteoarthritis [Recovering/Resolving]
  - Nausea [Recovering/Resolving]
  - Insomnia [Recovering/Resolving]
  - Faeces hard [Recovering/Resolving]
  - Exostosis [Recovering/Resolving]
  - Arthralgia [Recovering/Resolving]
  - Inflammation [Recovering/Resolving]
